FAERS Safety Report 10632080 (Version 1)
Quarter: 2014Q4

REPORT INFORMATION
  Report Type: Spontaneous
  Country: US (occurrence: US)
  Receive Date: 20141205
  Receipt Date: 20141205
  Transmission Date: 20150529
  Serious: No
  Sender: FDA-Public Use
  Company Number: US-BRISTOL-MYERS SQUIBB COMPANY-21067764

PATIENT
  Age: 74 Year
  Sex: Male
  Weight: 68.48 kg

DRUGS (2)
  1. BYETTA [Suspect]
     Active Substance: EXENATIDE
     Indication: TYPE 2 DIABETES MELLITUS
     Dosage: BYETTA 5MCG AND 10MCG PEN ?1DF=5MCG/10MCG?INJECTION
     Route: 058
  2. ZYRTEC [Concomitant]
     Active Substance: CETIRIZINE HYDROCHLORIDE

REACTIONS (3)
  - Weight decreased [Unknown]
  - Off label use [Unknown]
  - Constipation [Unknown]
